FAERS Safety Report 4385872-1 (Version None)
Quarter: 2004Q2

REPORT INFORMATION
  Report Type: 
  Country: None (occurrence: None)
  Receive Date: 20040628
  Receipt Date: 20040621
  Transmission Date: 20050107
  Serious: Yes (Other)
  Sender: FDA-Public Use
  Company Number: US-GLAXOSMITHKLINE-A0515378A

PATIENT
  Age: 51 Year
  Sex: Female

DRUGS (7)
  1. PAXIL CR [Suspect]
     Indication: DEPRESSION
     Route: 048
     Dates: start: 20040618
  2. PAXIL [Suspect]
     Indication: DEPRESSION
     Route: 048
     Dates: start: 20030101, end: 20040501
  3. RISPERDAL [Concomitant]
  4. HYDROCHLOROTHIAZIDE [Concomitant]
  5. VISTARIL [Concomitant]
  6. ATENOLOL [Concomitant]
  7. PROPRANOLOL [Concomitant]

REACTIONS (5)
  - AGGRESSION [None]
  - CRYING [None]
  - DELUSION [None]
  - INSOMNIA [None]
  - TREMOR [None]
